FAERS Safety Report 11441458 (Version 1)
Quarter: 2015Q3

REPORT INFORMATION
  Report Type: Spontaneous
  Country: US (occurrence: US)
  Receive Date: 20150821
  Receipt Date: 20150821
  Transmission Date: 20151125
  Serious: Yes (Hospitalization)
  Sender: FDA-Public Use
  Company Number: US-ELI_LILLY_AND_COMPANY-US200805003500

PATIENT
  Age: 55 Year
  Sex: Female
  Weight: 117.46 kg

DRUGS (11)
  1. CYMBALTA [Suspect]
     Active Substance: DULOXETINE HYDROCHLORIDE
     Dosage: 30 MG, EACH MORNING
     Dates: end: 20080417
  2. CALCIUM [Concomitant]
     Active Substance: CALCIUM
  3. TYLENOL PM [Concomitant]
     Active Substance: ACETAMINOPHEN\DIPHENHYDRAMINE
     Dosage: UNK, AS NEEDED
  4. CYMBALTA [Suspect]
     Active Substance: DULOXETINE HYDROCHLORIDE
     Dosage: 30 MG, EACH MORNING
     Dates: start: 20080428, end: 2008
  5. VITAMINS [Concomitant]
     Active Substance: VITAMINS
  6. HYDROCHLOROTHIAZIDE. [Concomitant]
     Active Substance: HYDROCHLOROTHIAZIDE
     Dosage: 12.5 MG, UNK
  7. VITAMIN D [Concomitant]
     Active Substance: CHOLECALCIFEROL
  8. FLUTICASONE [Concomitant]
     Active Substance: FLUTICASONE\FLUTICASONE PROPIONATE
  9. CELESTONE [Concomitant]
     Active Substance: BETAMETHASONE
  10. CYMBALTA [Suspect]
     Active Substance: DULOXETINE HYDROCHLORIDE
     Dosage: 60 MG, EACH MORNING
     Dates: start: 20080418, end: 20080427
  11. ALLEGRA D /01367401/ [Concomitant]

REACTIONS (2)
  - Anxiety [Unknown]
  - Seizure [Unknown]

NARRATIVE: CASE EVENT DATE: 20080418
